FAERS Safety Report 13568656 (Version 3)
Quarter: 2021Q1

REPORT INFORMATION
  Report Type: Report from Study
  Country: US (occurrence: US)
  Receive Date: 20170522
  Receipt Date: 20210126
  Transmission Date: 20210419
  Serious: Yes (Hospitalization, Other)
  Sender: FDA-Public Use
  Company Number: US-009507513-1705USA009889

PATIENT
  Age: 72 Year
  Sex: Male

DRUGS (7)
  1. BELSOMRA [Suspect]
     Active Substance: SUVOREXANT
     Indication: POOR QUALITY SLEEP
     Dosage: 20 MG (1 TABLET) BEFORE BEDTIME
     Route: 048
     Dates: start: 20170516
  2. TRAZODONE HYDROCHLORIDE. [Concomitant]
     Active Substance: TRAZODONE HYDROCHLORIDE
  3. BELSOMRA [Suspect]
     Active Substance: SUVOREXANT
     Dosage: 20 MG (1 TABLET) BEFORE BEDTIME
     Route: 048
     Dates: start: 20170516
  4. XANAX [Concomitant]
     Active Substance: ALPRAZOLAM
     Dosage: 1 MG, UNK
  5. AMLODIPINE [Concomitant]
     Active Substance: AMLODIPINE BESYLATE
  6. PARNATE [Concomitant]
     Active Substance: TRANYLCYPROMINE SULFATE
     Dosage: UNK
  7. BELSOMRA [Suspect]
     Active Substance: SUVOREXANT
     Indication: INSOMNIA
     Dosage: 20 MG (1 TABLET) BEFORE BEDTIME
     Route: 048
     Dates: start: 20170516

REACTIONS (12)
  - Feeling jittery [Unknown]
  - Gait disturbance [Unknown]
  - Fear of disease [Unknown]
  - Product dose omission issue [Unknown]
  - Therapeutic product effect incomplete [Unknown]
  - Wrong technique in product usage process [Unknown]
  - Myocardial infarction [Unknown]
  - Feeling abnormal [Unknown]
  - Dehydration [Unknown]
  - Therapeutic product effect increased [Unknown]
  - Intervertebral disc protrusion [Unknown]
  - Venous occlusion [Unknown]

NARRATIVE: CASE EVENT DATE: 20170516
